FAERS Safety Report 16460669 (Version 2)
Quarter: 2019Q4

REPORT INFORMATION
  Report Type: Spontaneous
  Country: US (occurrence: US)
  Receive Date: 20190620
  Receipt Date: 20191227
  Transmission Date: 20200122
  Serious: Yes (Hospitalization, Other)
  Sender: FDA-Public Use
  Company Number: US-BRISTOL-MYERS SQUIBB COMPANY-BMS-2019-058817

PATIENT
  Age: 76 Year
  Sex: Male
  Weight: 129.3 kg

DRUGS (2)
  1. REMODULIN [Suspect]
     Active Substance: TREPROSTINIL
     Indication: PULMONARY ARTERIAL HYPERTENSION
     Dosage: 0.079 MILLIGRAM/KILOGRAM
     Route: 058
     Dates: start: 20060418
  2. WARFARIN SODIUM. [Suspect]
     Active Substance: WARFARIN SODIUM
     Indication: PRODUCT USED FOR UNKNOWN INDICATION
     Dosage: UNK
     Route: 065

REACTIONS (10)
  - Headache [Unknown]
  - Nausea [Unknown]
  - Swelling [Unknown]
  - Haemorrhage [Unknown]
  - Abdominal distension [Unknown]
  - Infusion site erythema [Unknown]
  - Hypertension [Unknown]
  - Pain [Unknown]
  - Infusion site bruising [Unknown]
  - Vomiting [Unknown]

NARRATIVE: CASE EVENT DATE: 20191127
